FAERS Safety Report 14301555 (Version 2)
Quarter: 2017Q4

REPORT INFORMATION
  Report Type: Spontaneous
  Country: US (occurrence: US)
  Receive Date: 20171219
  Receipt Date: 20171219
  Transmission Date: 20180321
  Serious: Yes (Death, Hospitalization)
  Sender: FDA-Public Use
  Company Number: US-JNJFOC-20171221695

PATIENT
  Age: 63 Year
  Sex: Female

DRUGS (1)
  1. YONDELIS [Suspect]
     Active Substance: TRABECTEDIN
     Indication: LIPOSARCOMA
     Dosage: RECEIVED 2 DOSES
     Route: 042

REACTIONS (6)
  - Death [Fatal]
  - Cytopenia [Unknown]
  - Rhabdomyolysis [Unknown]
  - Liver function test abnormal [Unknown]
  - Bone marrow failure [Unknown]
  - Blood creatinine abnormal [Unknown]
